FAERS Safety Report 26195186 (Version 1)
Quarter: 2025Q4

REPORT INFORMATION
  Report Type: Spontaneous
  Country: CN (occurrence: CN)
  Receive Date: 20251224
  Receipt Date: 20251224
  Transmission Date: 20260118
  Serious: Yes (Other)
  Sender: RANBAXY
  Company Number: CN-SUN PHARMACEUTICAL INDUSTRIES LTD-2025R1-543451

PATIENT
  Age: 24 Year
  Sex: Male

DRUGS (1)
  1. TEMOZOLOMIDE [Suspect]
     Active Substance: TEMOZOLOMIDE
     Indication: Radiotherapy
     Dosage: UNK
     Route: 065

REACTIONS (2)
  - Neoplasm progression [Recovering/Resolving]
  - Condition aggravated [Unknown]
